FAERS Safety Report 4530971-4 (Version None)
Quarter: 2004Q4

REPORT INFORMATION
  Report Type: 
  Country: None (occurrence: None)
  Receive Date: 20041217
  Receipt Date: 20041130
  Transmission Date: 20050328
  Serious: Yes (Death, Life-Threatening)
  Sender: FDA-Public Use
  Company Number: DE-MERCK-0412DEU00008

PATIENT
  Age: 75 Year
  Sex: Female
  Weight: 63 kg

DRUGS (10)
  1. VIOXX [Suspect]
     Indication: BONE PAIN
     Route: 048
     Dates: start: 20040414, end: 20040930
  2. DIPYRONE [Concomitant]
     Route: 048
     Dates: start: 20040909, end: 20040930
  3. METOCLOPRAMIDE [Concomitant]
     Route: 048
     Dates: start: 20040909, end: 20040930
  4. ASPIRIN [Concomitant]
     Indication: CORONARY ARTERY DISEASE
     Route: 048
     Dates: start: 20000101, end: 20040930
  5. BISOPROLOL FUMARATE [Concomitant]
     Indication: HYPERTENSION
     Route: 048
     Dates: start: 20000101, end: 20040930
  6. CALCIUM CARBONATE [Concomitant]
     Route: 065
     Dates: start: 20020101, end: 20040930
  7. ALFACALCIDOL [Concomitant]
     Route: 048
     Dates: start: 20020101, end: 20040930
  8. RAMIPRIL [Concomitant]
     Indication: HYPERTENSION
     Route: 048
     Dates: start: 20020101, end: 20040930
  9. FENTANYL [Concomitant]
     Route: 061
     Dates: start: 20040401, end: 20040930
  10. INSULIN [Concomitant]
     Indication: DIABETES MELLITUS
     Route: 065

REACTIONS (1)
  - VENTRICULAR ARRHYTHMIA [None]
